FAERS Safety Report 20901716 (Version 4)
Quarter: 2022Q3

REPORT INFORMATION
  Report Type: Spontaneous
  Country: US (occurrence: US)
  Receive Date: 20220601
  Receipt Date: 20220912
  Transmission Date: 20221026
  Serious: Yes (Other)
  Sender: FDA-Public Use
  Company Number: US-BRISTOL-MYERS SQUIBB COMPANY-2022-044775

PATIENT
  Age: 79 Year
  Sex: Female

DRUGS (1)
  1. REVLIMID [Suspect]
     Active Substance: LENALIDOMIDE
     Indication: Lymphoma
     Route: 048
     Dates: start: 20220128

REACTIONS (6)
  - Epistaxis [Unknown]
  - Rash [Unknown]
  - Onychoclasis [Unknown]
  - Diarrhoea [Unknown]
  - Dry skin [Unknown]
  - Onychomycosis [Unknown]
